FAERS Safety Report 20762096 (Version 1)
Quarter: 2022Q2

REPORT INFORMATION
  Report Type: Spontaneous
  Country: US (occurrence: None)
  Receive Date: 20220427
  Receipt Date: 20220427
  Transmission Date: 20220721
  Serious: No
  Sender: FDA-Public Use
  Company Number: None

PATIENT
  Age: 58 Year
  Sex: Female
  Weight: 126.1 kg

DRUGS (21)
  1. WELIREG [Suspect]
     Active Substance: BELZUTIFAN
     Indication: Metastases to lung
     Route: 048
     Dates: start: 202112
  2. ALLOPURINOL [Concomitant]
     Active Substance: ALLOPURINOL
  3. AMLODIPINE BESYLATE [Concomitant]
     Active Substance: AMLODIPINE BESYLATE
  4. CALCIUM CARBONATE\VITAMIN D [Concomitant]
     Active Substance: CALCIUM CARBONATE\VITAMIN D
  5. DEXAMETHASONE [Concomitant]
     Active Substance: DEXAMETHASONE
  6. LEVOTHYROXINE SODIUM [Concomitant]
     Active Substance: LEVOTHYROXINE SODIUM
  7. Lidocaine HCI [Concomitant]
  8. LIOTHYRONINE SODIUM [Concomitant]
     Active Substance: LIOTHYRONINE SODIUM
  9. LOMOTIL [Concomitant]
     Active Substance: ATROPINE SULFATE\DIPHENOXYLATE HYDROCHLORIDE
  10. LOSARTAN [Concomitant]
  11. POTASSIUM [Concomitant]
     Active Substance: POTASSIUM
  12. Mupiroch [Concomitant]
  13. NARCAN [Concomitant]
     Active Substance: NALOXONE HYDROCHLORIDE
  14. NOVOLOG [Concomitant]
     Active Substance: INSULIN ASPART
  15. NYSTATIN [Concomitant]
     Active Substance: NYSTATIN
  16. ONDANSETRON [Concomitant]
  17. OXYCODONE [Concomitant]
     Active Substance: OXYCODONE
  18. SIMVASTATIN [Concomitant]
     Active Substance: SIMVASTATIN
  19. TRESIBA [Concomitant]
     Active Substance: INSULIN DEGLUDEC
  20. TRIAMCINOLONE ACETONIDE [Concomitant]
     Active Substance: TRIAMCINOLONE ACETONIDE
  21. WARFARIN SODIUM [Concomitant]
     Active Substance: WARFARIN SODIUM

REACTIONS (2)
  - COVID-19 [None]
  - Fatigue [None]
